FAERS Safety Report 5476278-2 (Version None)
Quarter: 2007Q4

REPORT INFORMATION
  Report Type: 
  Country: None (occurrence: None)
  Receive Date: 20071003
  Receipt Date: 20070921
  Transmission Date: 20080405
  Serious: Yes (Other)
  Sender: FDA-Public Use
  Company Number: GB-PFIZER INC-2007067627

PATIENT
  Age: 55 Year
  Sex: Male
  Weight: 97 kg

DRUGS (1)
  1. VARENICLINE TABLETS [Suspect]
     Indication: SMOKING CESSATION THERAPY
     Route: 048
     Dates: start: 20070105, end: 20070412

REACTIONS (2)
  - DEPRESSION [None]
  - HYPOTHYROIDISM [None]
